FAERS Safety Report 4959555-0 (Version None)
Quarter: 2006Q1

REPORT INFORMATION
  Report Type: 
  Country: None (occurrence: None)
  Receive Date: 20060331
  Receipt Date: 20060320
  Transmission Date: 20060701
  Serious: Yes (Congenital Anomaly, Other)
  Sender: FDA-Public Use
  Company Number: SK-GLAXOSMITHKLINE-B0418451A

PATIENT
  Sex: Male

DRUGS (2)
  1. LAMICTAL [Suspect]
     Indication: EPILEPSY
     Dates: end: 20051115
  2. DEPAKENE [Suspect]
     Dates: start: 20040621, end: 20051115

REACTIONS (6)
  - CONGENITAL ANOMALY [None]
  - DRUG EXPOSURE DURING PREGNANCY [None]
  - GINGIVAL DISORDER [None]
  - GROWTH RETARDATION [None]
  - HYPERTONIA [None]
  - TORTICOLLIS [None]
